FAERS Safety Report 9913317 (Version 2)
Quarter: 2014Q1

REPORT INFORMATION
  Report Type: Spontaneous
  Country: BR (occurrence: BR)
  Receive Date: 20140220
  Receipt Date: 20140220
  Transmission Date: 20141002
  Serious: Yes (Other)
  Sender: FDA-Public Use
  Company Number: BR-BAYER-2013-115450

PATIENT
  Age: 49 Year
  Sex: Female
  Weight: 63 kg

DRUGS (4)
  1. MIRENA [Suspect]
     Indication: VAGINAL HAEMORRHAGE
     Dosage: 20 ?G/D, CONT
     Route: 015
     Dates: start: 20130809
  2. MIRENA [Suspect]
     Indication: DYSMENORRHOEA
  3. QLAIRA [Suspect]
     Dosage: UNK
     Route: 048
  4. DORFLEX [Concomitant]
     Indication: SPINAL PAIN
     Route: 048

REACTIONS (10)
  - Metrorrhagia [None]
  - Abdominal pain lower [Not Recovered/Not Resolved]
  - Vaginal discharge [Recovered/Resolved]
  - Off label use [None]
  - Blood pressure increased [Not Recovered/Not Resolved]
  - Weight increased [Not Recovered/Not Resolved]
  - Headache [Recovering/Resolving]
  - Neck pain [Recovering/Resolving]
  - Metrorrhagia [None]
  - Vaginitis gardnerella [None]
